FAERS Safety Report 5529168-0 (Version None)
Quarter: 2007Q4

REPORT INFORMATION
  Report Type: 
  Country: None (occurrence: None)
  Receive Date: 20071129
  Receipt Date: 20070323
  Transmission Date: 20080405
  Serious: No
  Sender: FDA-Public Use
  Company Number: A0644281A

PATIENT
  Age: 32 Year
  Sex: Female

DRUGS (4)
  1. BUPROPION HYDROCHLORIDE [Suspect]
     Indication: DRUG USE FOR UNKNOWN INDICATION
     Dosage: 150MG TWICE PER DAY
     Route: 048
     Dates: start: 20070313
  2. MAXALT-MLT [Concomitant]
     Indication: MIGRAINE
     Dates: start: 20070130
  3. NAPROXEN [Concomitant]
     Indication: MIGRAINE
     Dates: start: 20070202
  4. DRYSOL [Concomitant]
     Dates: start: 20070122

REACTIONS (1)
  - AMENORRHOEA [None]
